FAERS Safety Report 16110356 (Version 2)
Quarter: 2019Q1

REPORT INFORMATION
  Report Type: Report from Study
  Country: MZ (occurrence: MZ)
  Receive Date: 20190325
  Receipt Date: 20190328
  Transmission Date: 20190418
  Serious: Yes (Death)
  Sender: FDA-Public Use
  Company Number: MZ-VIIV HEALTHCARE LIMITED-MZ2019GSK048950

PATIENT
  Age: 31 Year
  Sex: Male
  Weight: 40 kg

DRUGS (3)
  1. TENOFOVIR DISOPROXIL FUMARATE. [Suspect]
     Active Substance: TENOFOVIR DISOPROXIL FUMARATE
     Indication: HIV INFECTION
     Dosage: UNK
     Dates: start: 20171124, end: 20180228
  2. EFAVIRENZ. [Suspect]
     Active Substance: EFAVIRENZ
     Indication: HIV INFECTION
     Dosage: UNK
     Dates: start: 20171124, end: 20180228
  3. LAMIVUDINE. [Suspect]
     Active Substance: LAMIVUDINE
     Indication: HIV INFECTION
     Dosage: UNK
     Dates: start: 20171124, end: 20180228

REACTIONS (2)
  - Anaemia [Fatal]
  - Malnutrition [Fatal]

NARRATIVE: CASE EVENT DATE: 20180122
